FAERS Safety Report 21483880 (Version 4)
Quarter: 2023Q2

REPORT INFORMATION
  Report Type: Spontaneous
  Country: US (occurrence: US)
  Receive Date: 20221020
  Receipt Date: 20230515
  Transmission Date: 20230721
  Serious: Yes (Other)
  Sender: FDA-Public Use
  Company Number: US-CELLTRION INC.-2022US009930

PATIENT

DRUGS (2)
  1. INFLECTRA [Suspect]
     Active Substance: INFLIXIMAB-DYYB
     Indication: Sarcoidosis
     Dosage: UNK, EVERY 8 WEEKS
     Route: 042
     Dates: start: 202210
  2. INFLECTRA [Suspect]
     Active Substance: INFLIXIMAB-DYYB
     Dosage: 590 MG INTRAVENOUSLY EVERY EIGHT WEEKS
     Route: 042
     Dates: start: 20230314

REACTIONS (10)
  - Cardiac failure [Unknown]
  - Alanine aminotransferase abnormal [Unknown]
  - Oedema peripheral [Unknown]
  - Joint swelling [Unknown]
  - Peripheral swelling [Unknown]
  - Palpitations [Unknown]
  - Malaise [Unknown]
  - Product substitution issue [Unknown]
  - Off label use [Unknown]
  - Therapy interrupted [Unknown]

NARRATIVE: CASE EVENT DATE: 20230223
